FAERS Safety Report 21094800 (Version 1)
Quarter: 2022Q3

REPORT INFORMATION
  Report Type: Report from Study
  Country: KR (occurrence: KR)
  Receive Date: 20220718
  Receipt Date: 20220718
  Transmission Date: 20221027
  Serious: Yes (Hospitalization)
  Sender: FDA-Public Use
  Company Number: KR-GLAXOSMITHKLINE-KR2022GSK107095

PATIENT

DRUGS (12)
  1. FLUTICASONE FUROATE\UMECLIDINIUM BROMIDE\VILANTEROL TRIFENATATE [Suspect]
     Active Substance: FLUTICASONE FUROATE\UMECLIDINIUM BROMIDE\VILANTEROL TRIFENATATE
     Indication: Chronic obstructive pulmonary disease
     Dosage: 1
     Route: 055
     Dates: start: 20211124
  2. SYNATURA SYRUP [Concomitant]
     Indication: Product used for unknown indication
     Dosage: 15 ML, BID TOTAL 0 DAYS)
     Route: 048
     Dates: start: 20211124
  3. VENTOLIN [Concomitant]
     Active Substance: ALBUTEROL SULFATE
     Indication: Product used for unknown indication
     Dosage: TOTAL 0 DAYS
     Route: 048
     Dates: start: 20211124
  4. CYMBALTA [Concomitant]
     Active Substance: DULOXETINE HYDROCHLORIDE
     Indication: Product used for unknown indication
     Dosage: 60 MG, BID TOTAL 0 DAYS
     Route: 048
     Dates: start: 20211026
  5. SYNERJET ER [Concomitant]
     Indication: Product used for unknown indication
     Dosage: 650 MG, BID TOTAL 0 DAYS
     Route: 048
     Dates: start: 20211026
  6. SOMETO [Concomitant]
     Indication: Product used for unknown indication
     Dosage: 320 MG, QD TOTAL 0 DAYS
     Route: 058
     Dates: start: 20211026
  7. BETMIGA PR TABLET [Concomitant]
     Indication: Product used for unknown indication
     Dosage: 50 MG, QD TOTAL 0 DAYS
     Route: 048
     Dates: start: 20211026
  8. GASTIIN CR TABLET [Concomitant]
     Indication: Product used for unknown indication
     Dosage: 15 MG, QD TOTAL 0 DAYS
     Route: 048
     Dates: start: 20211026
  9. HINECHOL TABLET [Concomitant]
     Indication: Product used for unknown indication
     Dosage: 25 MG, QD TOTAL 0 DAYS
     Route: 048
     Dates: start: 20211026
  10. MAGMIL TABLET [Concomitant]
     Indication: Product used for unknown indication
     Dosage: 500 MG, BID TOTAL 0 DAYS
     Route: 048
     Dates: start: 20211026
  11. ISOKET RETARD TABLET [Concomitant]
     Indication: Product used for unknown indication
     Dosage: 40 MG, BID TOTAL 0 DAYS
     Route: 048
     Dates: start: 20211026
  12. ELIQUIS TABLET [Concomitant]
     Indication: Product used for unknown indication
     Dosage: 2.5 MG, BID TOTAL 0 DAYS
     Route: 048
     Dates: start: 20211026

REACTIONS (1)
  - Benign prostatic hyperplasia [Recovered/Resolved]

NARRATIVE: CASE EVENT DATE: 20220509
